FAERS Safety Report 5358312-3 (Version None)
Quarter: 2007Q2

REPORT INFORMATION
  Report Type: 
  Country: None (occurrence: None)
  Receive Date: 20070530
  Receipt Date: 20061128
  Transmission Date: 20071010
  Serious: Yes (Other)
  Sender: FDA-Public Use
  Company Number: US200602005107

PATIENT
  Age: 50 Year
  Sex: Female
  Weight: 112.9 kg

DRUGS (8)
  1. ZYPREXA [Suspect]
     Indication: ANXIETY
     Dosage: 20 MG, ORAL
     Route: 048
     Dates: start: 19981027, end: 20050829
  2. RISPERDAL [Concomitant]
  3. SEROQUEL [Concomitant]
  4. CLOZAPINE [Concomitant]
  5. ZIPRASIDONE HCL [Concomitant]
  6. DIVALPROEX SODIUM [Concomitant]
  7. BUPROPION HCL [Concomitant]
  8. FLUOXETINE [Concomitant]

REACTIONS (5)
  - BLOOD CHOLESTEROL ABNORMAL [None]
  - DIABETES MELLITUS NON-INSULIN-DEPENDENT [None]
  - HYPOGLYCAEMIA [None]
  - PANCREATITIS [None]
  - WEIGHT INCREASED [None]
